FAERS Safety Report 13647237 (Version 1)
Quarter: 2017Q2

REPORT INFORMATION
  Report Type: Spontaneous
  Country: JP (occurrence: JP)
  Receive Date: 20170613
  Receipt Date: 20170613
  Transmission Date: 20170830
  Serious: Yes (Other)
  Sender: FDA-Public Use
  Company Number: JP-PFIZER INC-2017234408

PATIENT
  Age: 61 Year
  Sex: Male
  Weight: 83 kg

DRUGS (7)
  1. ACETAMINOPHEN. [Suspect]
     Active Substance: ACETAMINOPHEN
     Dosage: UNK
  2. CEFTRIAXONE SODIUM. [Suspect]
     Active Substance: CEFTRIAXONE SODIUM
     Indication: PHARYNGITIS
     Dosage: UNK
     Route: 041
     Dates: start: 20130701
  3. DECADRON [Suspect]
     Active Substance: DEXAMETHASONE
     Indication: PHARYNGITIS
     Dosage: UNK
     Route: 041
     Dates: start: 20130701
  4. DALACIN S [Suspect]
     Active Substance: CLINDAMYCIN PHOSPHATE
     Indication: PHARYNGITIS
     Dosage: UNK
     Route: 041
     Dates: start: 20130701
  5. LOXONIN [Suspect]
     Active Substance: LOXOPROFEN SODIUM
     Dosage: UNK
     Route: 048
     Dates: start: 20130610
  6. FLOMOX [Suspect]
     Active Substance: CEFCAPENE PIVOXIL HYDROCHLORIDE HYDRATE
     Dosage: UNK
     Route: 048
     Dates: start: 20130610
  7. LAVIN (SOFALCONE) [Suspect]
     Active Substance: SOFALCONE
     Dosage: UNK
     Route: 048
     Dates: start: 20130610

REACTIONS (6)
  - Anaphylactic reaction [Recovered/Resolved]
  - Drug hypersensitivity [Unknown]
  - Drug cross-reactivity [Unknown]
  - Dyspnoea [Recovered/Resolved]
  - Visual acuity reduced transiently [Recovered/Resolved]
  - Rash [Recovered/Resolved]

NARRATIVE: CASE EVENT DATE: 20130610
